FAERS Safety Report 18379370 (Version 1)
Quarter: 2020Q4

REPORT INFORMATION
  Report Type: Report from Study
  Country: US (occurrence: US)
  Receive Date: 20201014
  Receipt Date: 20201014
  Transmission Date: 20210114
  Serious: No
  Sender: FDA-Public Use
  Company Number: US-TERSERA THERAPEUTICS LLC-US2019TSO175118

PATIENT

DRUGS (2)
  1. ROLAPITANT HYDROCHLORIDE [Suspect]
     Active Substance: ROLAPITANT
     Dosage: 180 MG, EVERY 2 WEEKS
     Dates: start: 20190819
  2. ROLAPITANT HYDROCHLORIDE [Suspect]
     Active Substance: ROLAPITANT
     Dosage: 180 MG, EVERY 3 WEEKS
     Dates: start: 20191030

REACTIONS (11)
  - Sensitive skin [Unknown]
  - Disease progression [Unknown]
  - Headache [Unknown]
  - Nocturia [Unknown]
  - Infection [Unknown]
  - Constipation [Unknown]
  - Rash [Unknown]
  - Dry skin [Unknown]
  - Fatigue [Unknown]
  - Pollakiuria [Unknown]
  - Depression [Unknown]
